FAERS Safety Report 13544381 (Version 1)
Quarter: 2017Q2

REPORT INFORMATION
  Report Type: Spontaneous
  Country: US (occurrence: US)
  Receive Date: 20170515
  Receipt Date: 20170515
  Transmission Date: 20170830
  Serious: Yes (Other)
  Sender: FDA-Public Use
  Company Number: US-TEVA-767952ACC

PATIENT
  Age: 20 Year
  Sex: Female
  Weight: 50.85 kg

DRUGS (2)
  1. PARAGARD T 380A [Suspect]
     Active Substance: COPPER
     Indication: CONTRACEPTION
     Dates: start: 20170425, end: 20170503
  2. MISOPROSTOL. [Concomitant]
     Active Substance: MISOPROSTOL
     Dates: start: 20170424, end: 20170424

REACTIONS (1)
  - Device dislocation [Recovered/Resolved]

NARRATIVE: CASE EVENT DATE: 20170503
